FAERS Safety Report 4459867-3 (Version None)
Quarter: 2004Q3

REPORT INFORMATION
  Report Type: 
  Country: None (occurrence: None)
  Receive Date: 20040928
  Receipt Date: 20030711
  Transmission Date: 20050211
  Serious: No
  Sender: FDA-Public Use
  Company Number: US-GLAXOSMITHKLINE-A0416873A

PATIENT
  Age: 59 Year
  Sex: Female
  Weight: 55 kg

DRUGS (2)
  1. SEREVENT [Suspect]
     Route: 055
  2. ALBUTEROL [Concomitant]
     Dosage: 2PUFF AS REQUIRED
     Route: 055

REACTIONS (1)
  - HOARSENESS [None]
